FAERS Safety Report 10267900 (Version 1)
Quarter: 2014Q2

REPORT INFORMATION
  Report Type: Spontaneous
  Country: US (occurrence: None)
  Receive Date: 20140626
  Receipt Date: 20140626
  Transmission Date: 20141212
  Serious: Yes (Hospitalization, Other)
  Sender: FDA-Public Use
  Company Number: None

PATIENT
  Age: 31 Year
  Sex: Female
  Weight: 68.04 kg

DRUGS (4)
  1. MIRENA IUD [Suspect]
  2. PRENATAL VITAMINS [Concomitant]
  3. FISH OIL [Concomitant]
  4. PROBIOTIC [Concomitant]

REACTIONS (4)
  - Uterine perforation [None]
  - Device dislocation [None]
  - Device dislocation [None]
  - Device dislocation [None]
